FAERS Safety Report 13168607 (Version 1)
Quarter: 2017Q1

REPORT INFORMATION
  Report Type: Spontaneous
  Country: US (occurrence: US)
  Receive Date: 20170131
  Receipt Date: 20170131
  Transmission Date: 20170428
  Serious: Yes (Other)
  Sender: FDA-Public Use
  Company Number: US-BEH-2017077652

PATIENT
  Sex: Female
  Weight: 99.32 kg

DRUGS (41)
  1. GLIPIZIDE. [Concomitant]
     Active Substance: GLIPIZIDE
  2. NASONEX [Concomitant]
     Active Substance: MOMETASONE FUROATE
  3. OXYBUTYNIN [Concomitant]
     Active Substance: OXYBUTYNIN
  4. LASIX [Concomitant]
     Active Substance: FUROSEMIDE
  5. MORPHINE [Concomitant]
     Active Substance: MORPHINE
  6. DIPHENHYDRAMINE. [Concomitant]
     Active Substance: DIPHENHYDRAMINE
  7. VITAMIN B6 [Concomitant]
     Active Substance: PYRIDOXINE HYDROCHLORIDE
  8. HIZENTRA [Suspect]
     Active Substance: HUMAN IMMUNOGLOBULIN G
     Dosage: UNK
     Route: 058
  9. PROCHLORPERAZINE. [Concomitant]
     Active Substance: PROCHLORPERAZINE
  10. AZELASTINE [Concomitant]
     Active Substance: AZELASTINE
  11. METOPROLOL. [Concomitant]
     Active Substance: METOPROLOL
  12. OMEGA 3-6-9                        /01333901/ [Concomitant]
     Active Substance: OMEGA-3 FATTY ACIDS
  13. MULTIVITAMIN                       /00097801/ [Concomitant]
     Active Substance: VITAMINS
  14. PLAVIX [Concomitant]
     Active Substance: CLOPIDOGREL BISULFATE
  15. HIZENTRA [Suspect]
     Active Substance: HUMAN IMMUNOGLOBULIN G
     Dosage: UNK
     Route: 058
  16. EPIPEN [Concomitant]
     Active Substance: EPINEPHRINE
  17. PAROXETINE. [Concomitant]
     Active Substance: PAROXETINE
  18. KRILL OIL [Concomitant]
     Active Substance: DIETARY SUPPLEMENT
  19. VITAMIN E                          /00110501/ [Concomitant]
     Active Substance: TOCOPHEROL
  20. BABY ASPIRIN [Concomitant]
     Active Substance: ASPIRIN
  21. SENOKOT [Concomitant]
     Active Substance: SENNOSIDES
  22. SUCRALFATE. [Concomitant]
     Active Substance: SUCRALFATE
  23. IRON [Concomitant]
     Active Substance: IRON
  24. CEPHALEXIN                         /00145501/ [Concomitant]
     Active Substance: CEPHALEXIN
  25. DEXAMETHASONE. [Concomitant]
     Active Substance: DEXAMETHASONE
  26. ACETAMINOPHEN. [Concomitant]
     Active Substance: ACETAMINOPHEN
  27. LMX                                /00033401/ [Concomitant]
  28. PREDNISONE. [Concomitant]
     Active Substance: PREDNISONE
  29. DEXILANT [Concomitant]
     Active Substance: DEXLANSOPRAZOLE
  30. POTASSIUM [Concomitant]
     Active Substance: POTASSIUM
  31. HIZENTRA [Suspect]
     Active Substance: HUMAN IMMUNOGLOBULIN G
     Indication: PULMONARY ARTERIAL HYPERTENSION
     Dosage: 15 G, QW
     Route: 058
     Dates: start: 20150820
  32. OXYCODONE [Concomitant]
     Active Substance: OXYCODONE
  33. PROMETHAZINE [Concomitant]
     Active Substance: PROMETHAZINE\PROMETHAZINE HYDROCHLORIDE
  34. ALENDRONATE [Concomitant]
     Active Substance: ALENDRONATE SODIUM
  35. VITAMIN D3 [Concomitant]
     Active Substance: CHOLECALCIFEROL
  36. RIOCIGUAT [Concomitant]
     Active Substance: RIOCIGUAT
  37. ONDANSETRON [Concomitant]
     Active Substance: ONDANSETRON
  38. AZITHROMYCIN ANHYDROUS. [Concomitant]
     Active Substance: AZITHROMYCIN ANHYDROUS
  39. CIPROFLOXACIN. [Concomitant]
     Active Substance: CIPROFLOXACIN
  40. MULTIVITAMIN                       /00097801/ [Concomitant]
     Active Substance: VITAMINS
  41. SYMBICORT [Concomitant]
     Active Substance: BUDESONIDE\FORMOTEROL FUMARATE DIHYDRATE

REACTIONS (1)
  - Neoplasm malignant [Unknown]
